FAERS Safety Report 8367329-6 (Version None)
Quarter: 2012Q2

REPORT INFORMATION
  Report Type: 
  Country: None (occurrence: None)
  Receive Date: 20120517
  Receipt Date: 20120509
  Transmission Date: 20120825
  Serious: Yes (Other)
  Sender: FDA-Public Use
  Company Number: BE-PFIZER INC-2012117793

PATIENT

DRUGS (1)
  1. PANTOPRAZOLE [Suspect]
     Dosage: 40 MG, DAILY
     Route: 048

REACTIONS (1)
  - BRONCHOSPASM [None]
